FAERS Safety Report 13682999 (Version 1)
Quarter: 2017Q2

REPORT INFORMATION
  Report Type: Spontaneous
  Country: US (occurrence: US)
  Receive Date: 20170623
  Receipt Date: 20170623
  Transmission Date: 20170830
  Serious: No
  Sender: FDA-Public Use
  Company Number: US-MALLINCKRODT-T201701926

PATIENT
  Sex: Female

DRUGS (22)
  1. OXYCODONE HYDROCHLORIDE. [Concomitant]
     Active Substance: OXYCODONE HYDROCHLORIDE
     Dosage: 10 MG TAB
  2. DEXTROAMPHETAMINE SACCHARATE, AMPHE [Concomitant]
  3. CYMBALTA [Concomitant]
     Active Substance: DULOXETINE HYDROCHLORIDE
     Dosage: 60 MG
  4. ENALAPRIL [Concomitant]
     Active Substance: ENALAPRIL
  5. CLOTRIMAZOLE AND BETAMETHASONE [Concomitant]
     Active Substance: BETAMETHASONE\CLOTRIMAZOLE
  6. ONDASETRON [Concomitant]
     Active Substance: ONDANSETRON
  7. ENALAPRIL MALEATE. [Concomitant]
     Active Substance: ENALAPRIL MALEATE
  8. LEUCOVORIN. [Concomitant]
     Active Substance: LEUCOVORIN
  9. TRIAMCINOLONE ACETONIDE. [Concomitant]
     Active Substance: TRIAMCINOLONE ACETONIDE
  10. CARAFATE [Concomitant]
     Active Substance: SUCRALFATE
     Dosage: 1 GM  TAB
  11. MAGNESIUM [Concomitant]
     Active Substance: MAGNESIUM
     Dosage: 500 MG TAB
  12. HYDROCHLOROTHIAZIDE W/TRIAMTERENE [Concomitant]
     Active Substance: HYDROCHLOROTHIAZIDE\TRIAMTERENE
  13. SUCRALFATE. [Concomitant]
     Active Substance: SUCRALFATE
  14. HYDROCODONE BITARTRATE AND ACETAMINOPHEN [Concomitant]
     Active Substance: ACETAMINOPHEN\HYDROCODONE BITARTRATE
  15. ALPRAZOLAM. [Concomitant]
     Active Substance: ALPRAZOLAM
  16. TRAZODONE HYDROCHLORIDE. [Concomitant]
     Active Substance: TRAZODONE HYDROCHLORIDE
  17. DOXEPIN HCL [Concomitant]
     Active Substance: DOXEPIN HYDROCHLORIDE
  18. CLINDAMYCIN PHOSPHATE. [Concomitant]
     Active Substance: CLINDAMYCIN PHOSPHATE
  19. METHOTREXATE SODIUM. [Concomitant]
     Active Substance: METHOTREXATE SODIUM
  20. H.P. ACTHAR [Suspect]
     Active Substance: CORTICOTROPIN
     Indication: RHEUMATOID ARTHRITIS
     Dosage: 80 UNITS/ 1ML, EVERY WEEK FOR 10 WEEKS
     Route: 058
     Dates: start: 20160925
  21. FORTEO [Concomitant]
     Active Substance: TERIPARATIDE
     Dosage: 600 /2.4
  22. PREDNISONE. [Concomitant]
     Active Substance: PREDNISONE
     Dosage: 10 MG

REACTIONS (1)
  - Osteoporosis [Not Recovered/Not Resolved]
